FAERS Safety Report 12828313 (Version 9)
Quarter: 2017Q3

REPORT INFORMATION
  Report Type: Report from Study
  Country: None (occurrence: BE)
  Receive Date: 20161007
  Receipt Date: 20170925
  Transmission Date: 20171127
  Serious: Yes (Hospitalization, Other)
  Sender: FDA-Public Use
  Company Number: BE-ABBVIE-16K-013-1742878-00

PATIENT
  Age: 49 Year
  Sex: Male

DRUGS (4)
  1. HUMIRA [Suspect]
     Active Substance: ADALIMUMAB
     Route: 058
     Dates: start: 201610, end: 201703
  2. HUMIRA [Suspect]
     Active Substance: ADALIMUMAB
     Route: 058
     Dates: start: 201705, end: 2017
  3. METHOTREXATE. [Concomitant]
     Active Substance: METHOTREXATE
     Indication: PRODUCT USED FOR UNKNOWN INDICATION
     Route: 030
     Dates: end: 2016
  4. HUMIRA [Suspect]
     Active Substance: ADALIMUMAB
     Indication: PRODUCT USED FOR UNKNOWN INDICATION
     Route: 058
     Dates: end: 2016

REACTIONS (17)
  - Dyspnoea [Recovering/Resolving]
  - Dizziness [Recovering/Resolving]
  - Vertigo [Unknown]
  - Limb discomfort [Unknown]
  - Drug effect incomplete [Not Recovered/Not Resolved]
  - Hyperventilation [Recovering/Resolving]
  - Vestibular disorder [Not Recovered/Not Resolved]
  - Gait disturbance [Recovering/Resolving]
  - Rheumatoid arthritis [Unknown]
  - Mobility decreased [Unknown]
  - Chest pain [Recovering/Resolving]
  - Pain in extremity [Unknown]
  - Muscular weakness [Recovering/Resolving]
  - Balance disorder [Unknown]
  - Pain [Recovering/Resolving]
  - Arthralgia [Unknown]
  - Myalgia [Unknown]

NARRATIVE: CASE EVENT DATE: 20160920
